FAERS Safety Report 16635015 (Version 1)
Quarter: 2019Q3

REPORT INFORMATION
  Report Type: Spontaneous
  Country: US (occurrence: US)
  Receive Date: 20190726
  Receipt Date: 20190726
  Transmission Date: 20191004
  Serious: No
  Sender: FDA-Public Use
  Company Number: US-EMMAUS MEDICAL, INC.-EMM201905-000164

PATIENT
  Age: 53 Year
  Sex: Female

DRUGS (9)
  1. FOLIC ACID. [Concomitant]
     Active Substance: FOLIC ACID
     Indication: SICKLE CELL DISEASE
  2. ENDARI [Suspect]
     Active Substance: GLUTAMINE
     Dosage: 2 PACKETS FOR 1 MONTH
     Route: 048
  3. ENDARI [Suspect]
     Active Substance: GLUTAMINE
     Dosage: 3 PACKETS
     Route: 048
  4. ENDARI [Suspect]
     Active Substance: GLUTAMINE
     Dosage: 2 PACKETS
     Route: 048
  5. ENDARI [Suspect]
     Active Substance: GLUTAMINE
     Dosage: 1 PACKET
     Route: 048
  6. ENDARI [Suspect]
     Active Substance: GLUTAMINE
     Indication: SICKLE CELL DISEASE
     Dosage: 3  PACKETS
     Route: 048
     Dates: start: 20180601
  7. MELOXICAM. [Concomitant]
     Active Substance: MELOXICAM
     Indication: CONNECTIVE TISSUE DISORDER
  8. PERCOCET [Concomitant]
     Active Substance: ACETAMINOPHEN\OXYCODONE HYDROCHLORIDE
     Indication: PAIN
  9. HYDROXYUREA. [Concomitant]
     Active Substance: HYDROXYUREA
     Indication: SICKLE CELL DISEASE

REACTIONS (1)
  - Hypotension [Not Recovered/Not Resolved]

NARRATIVE: CASE EVENT DATE: 20180607
